FAERS Safety Report 12193905 (Version 1)
Quarter: 2016Q1

REPORT INFORMATION
  Report Type: Spontaneous
  Country: US (occurrence: US)
  Receive Date: 20160321
  Receipt Date: 20160321
  Transmission Date: 20160526
  Serious: No
  Sender: FDA-Public Use
  Company Number: US-BRISTOL-MYERS SQUIBB COMPANY-BMS-2016-019624

PATIENT
  Age: 15 Year
  Sex: Male

DRUGS (3)
  1. ABILIFY [Suspect]
     Active Substance: ARIPIPRAZOLE
     Indication: ATTENTION DEFICIT/HYPERACTIVITY DISORDER
  2. ABILIFY [Suspect]
     Active Substance: ARIPIPRAZOLE
     Indication: ANXIETY
     Dosage: 5 MG, QD
     Route: 048
  3. ABILIFY [Suspect]
     Active Substance: ARIPIPRAZOLE
     Indication: OPPOSITIONAL DEFIANT DISORDER
     Dosage: 7.5 MG, QD
     Route: 048

REACTIONS (2)
  - Off label use [Unknown]
  - Wrong technique in product usage process [Unknown]
